FAERS Safety Report 14519842 (Version 1)
Quarter: 2018Q1

REPORT INFORMATION
  Report Type: Report from Study
  Country: US (occurrence: US)
  Receive Date: 20180212
  Receipt Date: 20180212
  Transmission Date: 20180509
  Serious: Yes (Other)
  Sender: FDA-Public Use
  Company Number: US-PFIZER INC-2018055137

PATIENT

DRUGS (4)
  1. METHYLPREDNISOLONE SODIUM SUCCINATE. [Suspect]
     Active Substance: METHYLPREDNISOLONE SODIUM SUCCINATE
     Dosage: UNK, CYCLIC (HIGH DOSE, 1 G/M2 ON DAY 1-3 OF CYCLES 1-4)
  2. OBINUTUZUMAB. [Suspect]
     Active Substance: OBINUTUZUMAB
     Dosage: 100 MG, CYCLIC (ON DAY 1, 6 CYCLES (28 DAYS/CYCLE))
     Route: 042
  3. OBINUTUZUMAB. [Suspect]
     Active Substance: OBINUTUZUMAB
     Dosage: 900 MG, CYCLIC (ON DAY 2, 6 CYCLES (28 DAYS/CYCLE))
  4. OBINUTUZUMAB. [Suspect]
     Active Substance: OBINUTUZUMAB
     Dosage: 1 G, CYCLIC (ON DAYS 8 AND 15 OF CYCLE 1, AND ON DAY 1 OF CYCLES 2-6, 6 CYCLES (28 DAYS/CYCLE))

REACTIONS (1)
  - Pulmonary embolism [Unknown]
